FAERS Safety Report 6604640-0 (Version None)
Quarter: 2010Q1

REPORT INFORMATION
  Report Type: 
  Country: None (occurrence: None)
  Receive Date: 20100226
  Receipt Date: 20100215
  Transmission Date: 20100710
  Serious: Yes (Life-Threatening)
  Sender: FDA-Public Use
  Company Number: DE-PFIZER INC-2010019339

PATIENT
  Age: 34 Year
  Sex: Male

DRUGS (106)
  1. ZITHROMAX [Suspect]
     Indication: PANCREATITIS
     Dosage: 500 MG/DAY
     Route: 042
     Dates: start: 20070530, end: 20070601
  2. HYDROCORTISONE SODIUM SUCCINATE [Suspect]
     Indication: PROPHYLAXIS
     Dosage: 100 MG, UNK
     Route: 042
     Dates: start: 20070523, end: 20070602
  3. FLUCONAZOLE [Suspect]
     Indication: PANCREATITIS
     Dosage: 800 MG, 1X/DAY
     Route: 042
     Dates: start: 20070523, end: 20070603
  4. INSULIN HUMAN [Suspect]
     Dosage: UNK
     Route: 042
     Dates: start: 20070515
  5. KETAMINE HYDROCHLORIDE [Suspect]
     Indication: SEDATION
     Dosage: UNK
     Route: 042
     Dates: start: 20070515, end: 20070521
  6. KETAMINE HYDROCHLORIDE [Suspect]
     Dosage: UNK
     Route: 042
     Dates: start: 20070523, end: 20070529
  7. FUROSEMIDE [Suspect]
     Indication: POLYURIA
     Dosage: UNK
     Route: 042
     Dates: start: 20070515, end: 20070520
  8. FUROSEMIDE [Suspect]
     Dosage: UNK
     Route: 042
     Dates: start: 20070523, end: 20070525
  9. FUROSEMIDE [Suspect]
     Dosage: UNK
     Route: 042
     Dates: start: 20070527, end: 20070530
  10. HEPARIN SODIUM [Suspect]
     Indication: THROMBOSIS PROPHYLAXIS
     Dosage: UNK
     Route: 042
     Dates: start: 20070515, end: 20070602
  11. SODIUM CHLORIDE [Suspect]
     Dosage: 0.9 %
     Route: 042
     Dates: start: 20070514, end: 20070515
  12. SODIUM CHLORIDE [Suspect]
     Dosage: 0.9 %
     Route: 042
     Dates: start: 20070523, end: 20070530
  13. SODIUM CHLORIDE [Suspect]
     Dosage: 0.9 %
     Route: 042
     Dates: start: 20070602, end: 20070602
  14. POTASSIUM CHLORIDE [Suspect]
     Dosage: UNK
     Route: 042
     Dates: start: 20070515, end: 20070520
  15. POTASSIUM CHLORIDE [Suspect]
     Dosage: UNK
     Route: 042
     Dates: start: 20070523, end: 20070602
  16. FOLATE [Suspect]
     Dosage: UNK
     Route: 042
     Dates: start: 20070523
  17. METOCLOPRAMIDE HYDROCHLORIDE [Suspect]
     Indication: NAUSEA
     Dosage: UNK
     Route: 042
     Dates: start: 20070523, end: 20070605
  18. NOVALGIN [Suspect]
     Indication: PAIN
     Dosage: 2.5 G IN THE MORNING, 1 G IN THE EVENING
     Route: 042
     Dates: start: 20070514, end: 20070514
  19. NOVALGIN [Suspect]
     Dosage: 2.5 G IN THE MORNING, 1 G IN THE EVENING
     Route: 042
     Dates: start: 20070523, end: 20070524
  20. NOVALGIN [Suspect]
     Dosage: 2.5 G IN THE MORNING, 1 G IN THE EVENING
     Route: 042
     Dates: start: 20070530, end: 20070530
  21. CONTRAST MEDIA [Suspect]
     Indication: COMPUTERISED TOMOGRAM
     Dosage: UNK
     Route: 042
     Dates: start: 20070513, end: 20070522
  22. CONTRAST MEDIA [Suspect]
     Dosage: UNK
     Route: 042
     Dates: start: 20070523, end: 20070523
  23. CONTRAST MEDIA [Suspect]
     Dosage: UNK
     Route: 042
     Dates: start: 20070531, end: 20070531
  24. RINGER LOSUNG [Suspect]
     Indication: SUPPLEMENTATION THERAPY
     Dosage: UNK
     Route: 042
     Dates: start: 20070514, end: 20070514
  25. RINGER LOSUNG [Suspect]
     Dosage: UNK
     Route: 042
     Dates: start: 20070523, end: 20070530
  26. RINGER LOSUNG [Suspect]
     Dosage: UNK
     Route: 042
     Dates: start: 20070602, end: 20070602
  27. VITAMIN B6 [Suspect]
     Indication: SUPPLEMENTATION THERAPY
     Dosage: UNK
     Route: 042
     Dates: start: 20070514, end: 20070514
  28. VITAMIN B6 [Suspect]
     Dosage: UNK
     Route: 042
     Dates: start: 20070523
  29. SUFENTANIL [Suspect]
     Indication: SEDATION
     Dosage: UNK
     Route: 042
     Dates: start: 20070515, end: 20070516
  30. SUFENTANIL [Suspect]
     Dosage: UNK
     Route: 042
     Dates: start: 20070521, end: 20070521
  31. SUFENTANIL [Suspect]
     Dosage: UNK
     Route: 042
     Dates: start: 20070523, end: 20070602
  32. MIDAZOLAM HCL [Suspect]
     Indication: SUPPLEMENTATION THERAPY
     Dosage: UNK
     Route: 042
     Dates: start: 20070516, end: 20070529
  33. VITAMIN B1 TAB [Suspect]
     Indication: SUPPLEMENTATION THERAPY
     Dosage: UNK
     Route: 042
     Dates: start: 20070516
  34. ZIENAM [Suspect]
     Indication: PANCREATITIS
     Dosage: 500 MG, 4X/DAY
     Route: 042
     Dates: start: 20070516, end: 20070531
  35. MOVICOL [Suspect]
     Indication: CONSTIPATION
     Dosage: 1 SACHET EVERY EVENING
     Route: 048
     Dates: start: 20070518, end: 20070523
  36. MOVICOL [Suspect]
     Dosage: 1 SACHET EVERY EVENING
     Route: 048
     Dates: start: 20070530, end: 20070604
  37. VANCOMYCIN [Suspect]
     Indication: PANCREATITIS
     Dosage: UNK
     Route: 042
     Dates: start: 20070523, end: 20070603
  38. PANTOZOL [Suspect]
     Indication: PROPHYLAXIS AGAINST GASTROINTESTINAL ULCER
     Dosage: 40 MG, 2X/DAY
     Route: 042
     Dates: start: 20070523, end: 20070605
  39. CATAPRESAN [Suspect]
     Indication: WITHDRAWAL SYNDROME
     Dosage: UNK
     Route: 042
     Dates: start: 20070523, end: 20070604
  40. CATAPRESAN [Suspect]
     Dosage: UNK
     Route: 042
     Dates: start: 20070606, end: 20070610
  41. BRONCHO SPRAY [Suspect]
     Indication: DYSPNOEA
     Dosage: THRICE DAILY
     Route: 055
     Dates: start: 20070523
  42. UNIZINK [Suspect]
     Indication: SUPPLEMENTATION THERAPY
     Dosage: ONCE DAILY
     Route: 042
     Dates: start: 20070523
  43. TPN [Suspect]
     Indication: SUPPLEMENTATION THERAPY
     Dosage: ONCE DAILY
     Route: 042
     Dates: start: 20070523
  44. CERNEVIT-12 [Suspect]
     Indication: SUPPLEMENTATION THERAPY
     Dosage: ONCE DAILY
     Route: 042
     Dates: start: 20070523
  45. GASTROGRAFIN [Suspect]
     Indication: ENDOSCOPY UPPER GASTROINTESTINAL TRACT
     Dosage: UNK
     Route: 042
     Dates: start: 20070524, end: 20070524
  46. GASTROGRAFIN [Suspect]
     Dosage: UNK
     Route: 042
     Dates: start: 20070529, end: 20070529
  47. PARACETAMOL [Suspect]
     Indication: PYREXIA
     Dosage: 1 G, UNK
     Route: 042
     Dates: start: 20070526, end: 20070527
  48. PARACETAMOL [Suspect]
     Dosage: 1 G, UNK
     Route: 042
     Dates: start: 20070529, end: 20070529
  49. PARACETAMOL [Suspect]
     Dosage: 1 G, UNK
     Route: 042
     Dates: start: 20070603, end: 20070603
  50. HALDOL [Suspect]
     Indication: ALCOHOL WITHDRAWAL SYNDROME
     Dosage: STARTING WITH 5 MG, THRICE DAILY, CONTINUED  WITH 5 MG TWICE DAILY
     Route: 042
     Dates: start: 20070526, end: 20070605
  51. NEPRESOL [Suspect]
     Indication: HYPERTENSION
     Dosage: UNK
     Route: 042
     Dates: start: 20070529, end: 20070531
  52. ALL OTHER THERAPEUTIC PRODUCTS [Suspect]
     Indication: DRUG USE FOR UNKNOWN INDICATION
     Dosage: UNK
     Route: 042
     Dates: start: 20070530, end: 20070530
  53. RIVOTRIL [Suspect]
     Indication: RESTLESSNESS
     Dosage: UNK
     Route: 042
     Dates: start: 20070531, end: 20070531
  54. TAZOBACTAM [Suspect]
     Indication: PANCREATITIS
     Dosage: 4.5 G, 3X/DAY
     Route: 042
     Dates: start: 20070531, end: 20070603
  55. ALT-INSULIN [Suspect]
     Indication: HYPERGLYCAEMIA
     Dosage: UNK
     Route: 058
     Dates: start: 20070603, end: 20070604
  56. KALINOR-BRAUSETABLETTEN [Suspect]
     Indication: SUPPLEMENTATION THERAPY
     Dosage: UNK
     Route: 048
     Dates: start: 20070603, end: 20070605
  57. CLEXANE [Suspect]
     Indication: THROMBOSIS PROPHYLAXIS
     Dosage: 40 MG, 1X/DAY
     Route: 058
     Dates: start: 20070603
  58. TAVOR [Suspect]
     Indication: ALCOHOL WITHDRAWAL SYNDROME
     Dosage: UNK
     Route: 042
     Dates: start: 20070603
  59. GLUCOSE [Suspect]
     Indication: SUPPLEMENTATION THERAPY
     Dosage: UNK
     Route: 042
     Dates: start: 20070603
  60. MEROPENEM [Suspect]
     Indication: PANCREATITIS
     Dosage: 1 G, 3X/DAY
     Route: 042
     Dates: start: 20070604
  61. METOCLOPRAMIDE [Suspect]
     Indication: NAUSEA
     Dosage: 30 GTT, 1X/DAY
     Route: 048
     Dates: start: 20070606, end: 20070609
  62. PANTOZOL [Suspect]
     Dosage: 40 MG, 2X/DAY
     Route: 048
     Dates: start: 20070606
  63. ALT-INSULIN [Concomitant]
     Dosage: UNK
     Route: 042
     Dates: start: 20070514, end: 20070514
  64. CALCIUM POLYSTYRENE SULFONATE [Concomitant]
     Indication: HYPERKALAEMIA
     Dosage: 2 SACHETS
     Route: 048
     Dates: start: 20070514, end: 20070514
  65. SODIUM BICARBONATE [Concomitant]
     Indication: SUPPLEMENTATION THERAPY
     Dosage: 8.4 %
     Route: 042
     Dates: start: 20070514, end: 20070515
  66. DIPIDOLOR [Concomitant]
     Indication: PAIN
     Dosage: 5 MG, 4X/DAY
     Route: 042
     Dates: start: 20070514, end: 20070515
  67. HEPARIN [Concomitant]
     Indication: THROMBOSIS PROPHYLAXIS
     Dosage: UNK
     Route: 058
     Dates: start: 20070514, end: 20070515
  68. FUROSEMIDE [Concomitant]
     Dosage: 20 MG, 2X/DAY
     Route: 048
     Dates: start: 20070514, end: 20070515
  69. DISTRANEURIN [Concomitant]
     Indication: WITHDRAWAL SYNDROME
     Dosage: EVERY 4 HOURS
     Route: 048
     Dates: start: 20070514, end: 20070515
  70. HETASTARCH IN SODIUM CHLORIDE [Concomitant]
     Indication: SUPPLEMENTATION THERAPY
     Dosage: 6 %
     Route: 042
     Dates: start: 20070514, end: 20070515
  71. ROCEPHIN [Concomitant]
     Indication: PANCREATITIS
     Dosage: 2 G, 1X/DAY
     Route: 042
     Dates: start: 20070513, end: 20070516
  72. CLONT [Concomitant]
     Indication: PANCREATITIS
     Dosage: 500 MG, 2X/DAY
     Route: 042
     Dates: start: 20070513, end: 20070516
  73. CLONIDINE [Concomitant]
     Indication: WITHDRAWAL SYNDROME
     Dosage: UNK
     Route: 042
     Dates: start: 20070514, end: 20070514
  74. CLONIDINE [Concomitant]
     Dosage: UNK
     Route: 042
     Dates: start: 20070516, end: 20070521
  75. NEXIUM [Concomitant]
     Indication: PROPHYLAXIS AGAINST GASTROINTESTINAL ULCER
     Dosage: STARTING WITH 40 MG, 2X/DAY, CONTINUED WITH 40 MG/, 1X/DAY
     Route: 042
     Dates: start: 20070513, end: 20070522
  76. TUTOFUSIN BG [Concomitant]
     Indication: SUPPLEMENTATION THERAPY
     Dosage: 500 MG, UNK
     Route: 042
     Dates: start: 20070513, end: 20070513
  77. TUTOFUSIN BG [Concomitant]
     Dosage: 500 MG, UNK
     Route: 042
     Dates: start: 20070518, end: 20070522
  78. MAGNESIUM [Concomitant]
     Dosage: ONCE DAILY
     Route: 048
     Dates: start: 20070601
  79. CALCIUM [Concomitant]
     Dosage: ONCE DAILY
     Route: 048
     Dates: start: 20070601
  80. VITAMIN C [Concomitant]
     Dosage: ONCE DAILY
     Dates: start: 20070601
  81. ARTERENOL [Concomitant]
     Indication: PROPHYLAXIS
     Dosage: UNK
     Route: 042
     Dates: start: 20070514, end: 20070519
  82. ARTERENOL [Concomitant]
     Dosage: UNK
     Route: 042
     Dates: start: 20070523, end: 20070524
  83. GLUCOSE [Concomitant]
     Dosage: 5 %
     Route: 042
     Dates: start: 20070514, end: 20070522
  84. GLUCOSE [Concomitant]
     Dosage: 20 %
     Route: 042
     Dates: start: 20070524, end: 20070524
  85. MIDAZOLAM [Concomitant]
     Indication: SEDATION
     Dosage: UNK
     Route: 042
     Dates: start: 20070515, end: 20070515
  86. VITAMIN B1 TAB [Concomitant]
     Dosage: 200 MG, 1X/DAY
     Route: 048
     Dates: start: 20070515, end: 20070515
  87. PROPOFOL [Concomitant]
     Indication: SEDATION
     Dosage: UNK
     Route: 042
     Dates: start: 20070515, end: 20070516
  88. LAXOBERAL [Concomitant]
     Indication: CONSTIPATION
     Dosage: 20 GTT, 1X/DAY
     Route: 048
     Dates: start: 20070515, end: 20070522
  89. LACTULOSE [Concomitant]
     Indication: CONSTIPATION
     Dosage: 20 ML, 3X/DAY
     Route: 048
     Dates: start: 20070515, end: 20070522
  90. CALCIUM [Concomitant]
     Indication: SUPPLEMENTATION THERAPY
     Dosage: UNK
     Route: 042
     Dates: start: 20070515, end: 20070522
  91. ALL OTHER THERAPEUTIC PRODUCTS [Concomitant]
     Indication: SUPPLEMENTATION THERAPY
     Dosage: 5 %
     Route: 042
     Dates: start: 20070517, end: 20070517
  92. CIPRO [Concomitant]
     Indication: PANCREATITIS
     Dosage: 200 MG, 2X/DAY
     Route: 042
     Dates: start: 20070517, end: 20070522
  93. LIPOFUNDIN [Concomitant]
     Dosage: UNK
     Route: 042
     Dates: start: 20070518, end: 20070521
  94. NEOSTIGMINE [Concomitant]
     Indication: PANCREATITIS
     Dosage: UNK
     Route: 042
     Dates: start: 20070518, end: 20070522
  95. INTRAFUSIN [Concomitant]
     Indication: SUPPLEMENTATION THERAPY
     Dosage: UNK
     Route: 042
     Dates: start: 20070518, end: 20070522
  96. MORPHIN [Concomitant]
     Indication: PAIN
     Dosage: 10 MG
     Route: 042
     Dates: start: 20070520, end: 20070520
  97. SUPRARENIN [Concomitant]
     Indication: CARDIAC ARREST
     Dosage: UNK
     Route: 042
     Dates: start: 20070521, end: 20070521
  98. SODIUM CHLORIDE [Concomitant]
     Indication: SUPPLEMENTATION THERAPY
     Dosage: 10 %
     Route: 042
     Dates: start: 20070522, end: 20070522
  99. PANCURONIUM [Concomitant]
     Indication: RELAXATION THERAPY
     Dosage: UNK
     Route: 042
     Dates: start: 20070522, end: 20070522
  100. BRICANYL [Concomitant]
     Indication: DYSPNOEA
     Dosage: ONCE DAILY
     Route: 058
     Dates: start: 20070523, end: 20070523
  101. ETOMIDATE [Concomitant]
     Indication: SEDATION
     Dosage: 5 MG, 4X/DAY
     Route: 042
     Dates: start: 20070523, end: 20070523
  102. VITAMIN B-12 [Concomitant]
     Indication: SUPPLEMENTATION THERAPY
     Dosage: UNK
     Route: 042
     Dates: start: 20070523, end: 20070524
  103. EBRANTIL [Concomitant]
     Indication: HYPERTENSION
     Dosage: UNK
     Route: 042
     Dates: start: 20070525, end: 20070525
  104. BELOC ZOK [Concomitant]
     Indication: HYPERTENSION
     Dosage: 5 MG, 1X/DAY
     Route: 048
     Dates: start: 20070525, end: 20070525
  105. XANEF [Concomitant]
     Indication: HYPERTENSION
     Dosage: UNK
     Route: 042
     Dates: start: 20070526, end: 20070526
  106. ATOSIL [Concomitant]
     Indication: ALCOHOL WITHDRAWAL SYNDROME
     Dosage: UNK
     Route: 042
     Dates: start: 20070609, end: 20070610

REACTIONS (2)
  - STEVENS-JOHNSON SYNDROME [None]
  - TOXIC EPIDERMAL NECROLYSIS [None]
